FAERS Safety Report 13530243 (Version 3)
Quarter: 2020Q2

REPORT INFORMATION
  Report Type: Spontaneous
  Country: US (occurrence: US)
  Receive Date: 20170509
  Receipt Date: 20200402
  Transmission Date: 20200713
  Serious: No
  Sender: FDA-Public Use
  Company Number: US-UCBSA-2015014057

PATIENT
  Age: 62 Year
  Sex: Female

DRUGS (4)
  1. NEUPRO [Suspect]
     Active Substance: ROTIGOTINE
     Indication: PARKINSON^S DISEASE
     Dosage: 8 MG, ONCE DAILY (QD) STRENGTH 6 MG, 8 MG AND 4 MG
     Route: 062
     Dates: start: 201210, end: 20150428
  2. NEUPRO [Suspect]
     Active Substance: ROTIGOTINE
     Dosage: 8 MG, ONCE DAILY (QD), STRENGTH 6 MG, 8 MG AND 4 MG
     Route: 062
     Dates: start: 201210
  3. SINEMET [Suspect]
     Active Substance: CARBIDOPA\LEVODOPA
     Indication: PRODUCT USED FOR UNKNOWN INDICATION
     Dosage: 15 PILLS PER DAY
  4. NEUPRO [Suspect]
     Active Substance: ROTIGOTINE
     Dosage: 4 MG
     Route: 062

REACTIONS (12)
  - Application site swelling [Not Recovered/Not Resolved]
  - Depression [Unknown]
  - Diplopia [Unknown]
  - Erythema [Not Recovered/Not Resolved]
  - Psychotic disorder [Unknown]
  - Product adhesion issue [Unknown]
  - Muscle atrophy [Unknown]
  - Rash [Not Recovered/Not Resolved]
  - Movement disorder [Unknown]
  - Application site urticaria [Not Recovered/Not Resolved]
  - Weight decreased [Unknown]
  - Pain in extremity [Unknown]

NARRATIVE: CASE EVENT DATE: 201304
